FAERS Safety Report 6246229-1 (Version None)
Quarter: 2009Q2

REPORT INFORMATION
  Report Type: 
  Country: None (occurrence: None)
  Receive Date: 20090626
  Receipt Date: 20090615
  Transmission Date: 20091009
  Serious: Yes (Other)
  Sender: FDA-Public Use
  Company Number: JP-JNJFOC-20090506643

PATIENT
  Age: 88 Year
  Sex: Female

DRUGS (4)
  1. DUROTEP [Suspect]
     Route: 062
  2. DUROTEP [Suspect]
     Indication: CANCER PAIN
     Route: 062
  3. AMARYL [Suspect]
     Indication: DIABETES MELLITUS
     Route: 048
  4. BASEN [Suspect]
     Indication: DIABETES MELLITUS
     Route: 048

REACTIONS (4)
  - COMA [None]
  - DEPRESSED LEVEL OF CONSCIOUSNESS [None]
  - HYPOGLYCAEMIA [None]
  - PAIN [None]
